FAERS Safety Report 6018486-8 (Version None)
Quarter: 2008Q4

REPORT INFORMATION
  Report Type: 
  Country: None (occurrence: None)
  Receive Date: 20081219
  Receipt Date: 20080409
  Transmission Date: 20090506
  Serious: Yes (Other)
  Sender: FDA-Public Use
  Company Number: US200804002421

PATIENT
  Sex: Female

DRUGS (2)
  1. HUMULIN R [Suspect]
     Dates: start: 20070101
  2. HUMULIN N [Suspect]
     Dates: start: 20070101

REACTIONS (4)
  - BLOOD GLUCOSE DECREASED [None]
  - LOSS OF CONSCIOUSNESS [None]
  - MALAISE [None]
  - VOMITING [None]
